FAERS Safety Report 17846873 (Version 2)
Quarter: 2020Q2

REPORT INFORMATION
  Report Type: Spontaneous
  Country: US (occurrence: US)
  Receive Date: 20200601
  Receipt Date: 20200602
  Transmission Date: 20200714
  Serious: No
  Sender: FDA-Public Use
  Company Number: US-TAKEDA-2020TUS024134

PATIENT
  Sex: Female

DRUGS (5)
  1. BUDESONIDE W/FORMOTEROL [Concomitant]
     Active Substance: BUDESONIDE\FORMOTEROL
     Dosage: UNK
  2. NINLARO [Suspect]
     Active Substance: IXAZOMIB CITRATE
     Indication: BONE CANCER
     Dosage: 4 MILLIGRAM
     Route: 048
     Dates: start: 20200107
  3. MONTELUKAST [Concomitant]
     Active Substance: MONTELUKAST SODIUM
     Dosage: UNK
  4. ACYCLOVIR                          /00587301/ [Concomitant]
     Active Substance: ACYCLOVIR
     Dosage: UNK
  5. SYMBICORT [Concomitant]
     Active Substance: BUDESONIDE\FORMOTEROL FUMARATE DIHYDRATE
     Dosage: UNK

REACTIONS (2)
  - Diarrhoea [Unknown]
  - Off label use [Unknown]
